FAERS Safety Report 13747880 (Version 1)
Quarter: 2017Q3

REPORT INFORMATION
  Report Type: Spontaneous
  Country: US (occurrence: US)
  Receive Date: 20170713
  Receipt Date: 20170713
  Transmission Date: 20171127
  Serious: No
  Sender: FDA-Public Use
  Company Number: US-TEVA-787022ACC

PATIENT
  Age: 44 Year
  Sex: Female

DRUGS (1)
  1. COPAXONE [Suspect]
     Active Substance: GLATIRAMER ACETATE
     Dates: start: 20170501

REACTIONS (3)
  - Injection site swelling [Unknown]
  - Injection site pruritus [Unknown]
  - Injection site bruising [Unknown]
